FAERS Safety Report 8670356 (Version 2)
Quarter: 2015Q2

REPORT INFORMATION
  Report Type: Report from Study
  Country: US (occurrence: US)
  Receive Date: 20120718
  Receipt Date: 20150626
  Transmission Date: 20150821
  Serious: Yes (Death)
  Sender: FDA-Public Use
  Company Number: US-ROCHE-1087600

PATIENT
  Sex: Female

DRUGS (6)
  1. ZYMAR [Concomitant]
     Active Substance: GATIFLOXACIN
  2. PROPARACAINE [Concomitant]
     Active Substance: PROPARACAINE
  3. BETADINE [Concomitant]
     Active Substance: POVIDONE-IODINE
  4. LUCENTIS [Suspect]
     Active Substance: RANIBIZUMAB
     Indication: MACULAR DEGENERATION
     Route: 050
  5. AVASTIN [Suspect]
     Active Substance: BEVACIZUMAB
     Indication: RETINAL VEIN OCCLUSION
     Route: 050
  6. VIGAMOX [Concomitant]
     Active Substance: MOXIFLOXACIN HYDROCHLORIDE

REACTIONS (1)
  - Death [Fatal]
